FAERS Safety Report 18183058 (Version 2)
Quarter: 2022Q1

REPORT INFORMATION
  Report Type: Spontaneous
  Country: US (occurrence: US)
  Receive Date: 20200821
  Receipt Date: 20220324
  Transmission Date: 20220423
  Serious: Yes (Other)
  Sender: FDA-Public Use
  Company Number: US-SAARTEMIS-SAC202008190338

PATIENT
  Age: 41 Year
  Sex: Female

DRUGS (1)
  1. ZANTAC [Suspect]
     Active Substance: RANITIDINE HYDROCHLORIDE
     Indication: Dyspepsia
     Dosage: UNK, QD
     Dates: start: 198001, end: 201901

REACTIONS (4)
  - Uterine cancer [Unknown]
  - Oesophageal carcinoma [Unknown]
  - Colorectal cancer stage II [Unknown]
  - Breast cancer female [Unknown]

NARRATIVE: CASE EVENT DATE: 19970101
